FAERS Safety Report 13684995 (Version 3)
Quarter: 2017Q3

REPORT INFORMATION
  Report Type: Report from Study
  Country: US (occurrence: US)
  Receive Date: 20170623
  Receipt Date: 20170901
  Transmission Date: 20171127
  Serious: Yes (Other)
  Sender: FDA-Public Use
  Company Number: US-009507513-1706USA007489

PATIENT
  Sex: Female

DRUGS (3)
  1. PRINIVIL [Concomitant]
     Active Substance: LISINOPRIL
  2. VYTORIN [Suspect]
     Active Substance: EZETIMIBE\SIMVASTATIN
     Indication: HYPERTENSION
     Dosage: 1 PILL A DAY (10/40 MG)
     Route: 048
     Dates: start: 2016, end: 2016
  3. VYTORIN [Suspect]
     Active Substance: EZETIMIBE\SIMVASTATIN
     Indication: HYPERTENSION
     Dosage: 1 PILL A DAY (10/20 MG)
     Route: 048
     Dates: start: 2009, end: 2017

REACTIONS (5)
  - Drug dispensing error [Unknown]
  - Drug dose omission [Unknown]
  - Bradycardia [Unknown]
  - Product use in unapproved indication [Unknown]
  - Cardiac disorder [Recovered/Resolved]

NARRATIVE: CASE EVENT DATE: 2009
